FAERS Safety Report 4730661-9 (Version None)
Quarter: 2005Q3

REPORT INFORMATION
  Report Type: 
  Country: None (occurrence: None)
  Receive Date: 20050725
  Receipt Date: 20050323
  Transmission Date: 20060218
  Serious: No
  Sender: FDA-Public Use
  Company Number: USA050392394

PATIENT
  Age: 49 Year
  Sex: Female

DRUGS (4)
  1. STRATTERA [Suspect]
     Indication: ATTENTION DEFICIT/HYPERACTIVITY DISORDER
     Dosage: 100 MG/1 DAY
     Dates: start: 20050121, end: 20050317
  2. SORIATANE [Concomitant]
  3. ELAVIL [Concomitant]
  4. LACTULOSE [Concomitant]

REACTIONS (5)
  - CONSTIPATION [None]
  - FLUSHING [None]
  - RASH [None]
  - RASH PAPULAR [None]
  - SKIN DISCOLOURATION [None]
